FAERS Safety Report 25868793 (Version 1)
Quarter: 2025Q4

REPORT INFORMATION
  Report Type: Spontaneous
  Country: GB (occurrence: GB)
  Receive Date: 20251001
  Receipt Date: 20251001
  Transmission Date: 20260119
  Serious: Yes (Other)
  Sender: DR REDDYS
  Company Number: None

PATIENT
  Age: 82 Year
  Sex: Female
  Weight: 60 kg

DRUGS (33)
  1. NICOTINE TRANSDERMAL SYSTEM [Suspect]
     Active Substance: NICOTINE
     Indication: Product used for unknown indication
     Dosage: 15MG/16HOURS
  2. AEROCHAMBER PLUS [Concomitant]
     Indication: Ill-defined disorder
     Dosage: USE AS DIRECTED, TPP YC - PLEASE RECLASSIFY
     Dates: start: 20250704, end: 20250711
  3. CHLORAMPHENICOL [Concomitant]
     Active Substance: CHLORAMPHENICOL
     Indication: Ill-defined disorder
     Dosage: APPLY TO THE AFFECTED EYE(S) TWICE A DAY UNTIL ...,?TPP YC - PLEASE RECLASSIFY
     Dates: start: 20250704, end: 20250711
  4. SEVODYNE [Concomitant]
     Indication: Ill-defined disorder
     Dosage: APPLY ONE PATCH EVERY SEVEN DAYS FOR PAIN RELIEF, TPP YC - PLEASE RECLASSIFY
     Dates: start: 20250717
  5. CYCLIZINE [Concomitant]
     Active Substance: CYCLIZINE
     Indication: Ill-defined disorder
     Dosage: 50MG SC THREE TIMES A DAY AS REQUIRED, FOR NAUS..., TPP YC - PLEASE RECLASSIFY
     Dates: start: 20250910, end: 20250915
  6. GLYCOPYRROLATE [Concomitant]
     Active Substance: GLYCOPYRROLATE
     Indication: Ill-defined disorder
     Dosage: 200MCG SC EVERY 6HOURS AS REQUIRED FOR SECRETIONS, TPP YC - PLEASE RECLASSIFY
     Dates: start: 20250910, end: 20250916
  7. MIDAZOLAM [Concomitant]
     Active Substance: MIDAZOLAM
     Indication: Ill-defined disorder
     Dosage: 2.5-5MG SC 2HRLY WHEN REQUIRED FOR SEDATION, TPP YC - PLEASE RECLASSIFY
     Dates: start: 20250910, end: 20250915
  8. MORPHINE SULFATE [Concomitant]
     Active Substance: MORPHINE SULFATE
     Indication: Ill-defined disorder
     Dosage: 2.5-5MG SC 2HRLY WHEN REQUIRED FOR PAIN. MAX 6 ..., TPP YC - PLEASE RECLASSIFY
     Dates: start: 20250910
  9. AYMES SHAKE [Concomitant]
     Indication: Ill-defined disorder
     Dosage: USE AS DIRECTED, TPP YC - PLEASE RECLASSIFY
     Dates: start: 20250915, end: 20250916
  10. POLYETHYLENE GLYCOL 3350\POTASSIUM CHLORIDE\SODIUM BICARBONATE\SODIUM [Concomitant]
     Active Substance: POLYETHYLENE GLYCOL 3350\POTASSIUM CHLORIDE\SODIUM BICARBONATE\SODIUM CHLORIDE
     Indication: Ill-defined disorder
     Dosage: TAKE ONE TO THREE SACHETS A DAY TO MAINTAIN NOR..., TPP YC - PLEASE RECLASSIFY
     Dates: start: 20250916
  11. WATER [Concomitant]
     Active Substance: WATER
     Indication: Ill-defined disorder
     Dosage: USE AS DIRECTED, TPP YC - PLEASE RECLASSIFY
     Dates: start: 20250918
  12. HALOPERIDOL [Concomitant]
     Active Substance: HALOPERIDOL
     Indication: Ill-defined disorder
     Dosage: 0.5-1.5MG SC IMMEDIATELY THEN 2-4 HOURLY AS DIR...,?TPP YC - PLEASE RECLASSIFY
     Dates: start: 20250918, end: 20250918
  13. OXYCODONE HYDROCHLORIDE [Concomitant]
     Active Substance: OXYCODONE HYDROCHLORIDE
     Indication: Ill-defined disorder
     Dosage: 2.5-5MG SC 2-4 HOURLY WHEN REQUIRED AND 5-10MG ..., TPP YC - PLEASE RECLASSIFY
     Dates: start: 20250918
  14. ACYCLOVIR [Concomitant]
     Active Substance: ACYCLOVIR
     Indication: Ill-defined disorder
     Dosage: ONCE DAILY, TPP YC - PLEASE RECLASSIFY
     Dates: start: 20250206, end: 20250910
  15. AMOXICILLIN [Concomitant]
     Active Substance: AMOXICILLIN
     Indication: Ill-defined disorder
     Dosage: TAKE ONE 3 TIMES/DAY, TPP YC - PLEASE RECLASSIFY
     Dates: start: 20250206
  16. ATORVASTATIN [Concomitant]
     Active Substance: ATORVASTATIN
     Indication: Ill-defined disorder
     Dosage: TAKE ONE DAILY, TPP YC - PLEASE RECLASSIFY
     Dates: start: 20250206, end: 20250910
  17. TIOTROPIUM BROMIDE [Concomitant]
     Active Substance: TIOTROPIUM BROMIDE
     Indication: Ill-defined disorder
     Dosage: INHALE 1 DOSE ONCE DAILY, TPP YC - PLEASE RECLASSIFY
     Dates: start: 20250206
  18. CARBOCYSTEINE [Concomitant]
     Active Substance: CARBOCYSTEINE
     Indication: Ill-defined disorder
     Dosage: TWO TABLETS TWICE A DAY, TPP YC - PLEASE RECLASSIFY
     Dates: start: 20250206, end: 20250910
  19. DOCUSATE SODIUM [Concomitant]
     Active Substance: DOCUSATE SODIUM
     Indication: Ill-defined disorder
     Dosage: TWO TABS BD, TPP YC - PLEASE RECLASSIFY
     Dates: start: 20250206
  20. MINERAL OIL\PETROLATUM\WAX, EMULSIFYING [Concomitant]
     Active Substance: MINERAL OIL\PETROLATUM\WAX, EMULSIFYING
     Indication: Ill-defined disorder
     Dosage: USE AS DIRECTED, TPP YC - PLEASE RECLASSIFY
     Dates: start: 20250206
  21. FOLIC ACID [Concomitant]
     Active Substance: FOLIC ACID
     Indication: Ill-defined disorder
     Dosage: TAKE ONE DAILY, TPP YC - PLEASE RECLASSIFY
     Dates: start: 20250206, end: 20250910
  22. FUROSEMIDE [Concomitant]
     Active Substance: FUROSEMIDE
     Indication: Ill-defined disorder
     Dosage: 80MG IN MORNING AND 40MG AT LUNCHTIME, TPP YC - PLEASE RECLASSIFY
     Dates: start: 20250206
  23. HUXD3 [Concomitant]
     Indication: Ill-defined disorder
     Dosage: 1T WEEKLY (MONDAY), TPP YC - PLEASE RECLASSIFY
     Dates: start: 20250206, end: 20250910
  24. LORAZEPAM [Concomitant]
     Active Substance: LORAZEPAM
     Indication: Ill-defined disorder
     Dosage: ONE TO BE TAKEN PRN, UP TO THREE TIMES A WEEK, TPP YC - PLEASE RECLASSIFY
     Dates: start: 20250206
  25. BECLOMETHASONE DIPROPIONATE\FORMOTEROL FUMARATE [Concomitant]
     Active Substance: BECLOMETHASONE DIPROPIONATE\FORMOTEROL FUMARATE
     Indication: Ill-defined disorder
     Dosage: INHALE TWO PUFFS TWICE A DAY (PLEASE RETURN YOU...,?TPP YC - PLEASE RECLASSIFY
     Dates: start: 20250206
  26. OLANZAPINE [Concomitant]
     Active Substance: OLANZAPINE
     Indication: Ill-defined disorder
     Dosage: ONE TO BE TAKEN EACH DAY, TPP YC - PLEASE RECLASSIFY
     Dates: start: 20250206
  27. OMEPRAZOLE [Concomitant]
     Active Substance: OMEPRAZOLE
     Indication: Ill-defined disorder
     Dosage: ONE TO BE TAKEN EACH DAY, TPP YC - PLEASE RECLASSIFY
     Dates: start: 20250206
  28. ACETAMINOPHEN [Concomitant]
     Active Substance: ACETAMINOPHEN
     Indication: Ill-defined disorder
     Dosage: 1-2T TDS/QDS, TPP YC - PLEASE RECLASSIFY
     Dates: start: 20250206
  29. PREDNISOLONE [Concomitant]
     Active Substance: PREDNISOLONE
     Indication: Ill-defined disorder
     Dosage: 30MG EVERY DAY, TPP YC - PLEASE RECLASSIFY
     Dates: start: 20250206
  30. PROCYCLIDINE [Concomitant]
     Active Substance: PROCYCLIDINE
     Indication: Ill-defined disorder
     Dosage: 1T OD, TPP YC - PLEASE RECLASSIFY
     Dates: start: 20250206
  31. ALBUTEROL [Concomitant]
     Active Substance: ALBUTEROL
     Indication: Ill-defined disorder
     Dosage: TWO PUFFS AS REQUIRED, TPP YC - PLEASE RECLASSIFY
     Dates: start: 20250206
  32. SERTRALINE [Concomitant]
     Active Substance: SERTRALINE HYDROCHLORIDE
     Indication: Ill-defined disorder
     Dosage: ONE A DAY, TPP YC - PLEASE RECLASSIFY
     Dates: start: 20250206, end: 20250910
  33. ZOPICLONE [Concomitant]
     Active Substance: ZOPICLONE
     Indication: Ill-defined disorder
     Dosage: TAKE ONE OR TWO AT NIGHT, TPP YC - PLEASE RECLASSIFY
     Dates: start: 20250206

REACTIONS (1)
  - Psychotic disorder [Recovered/Resolved]
